FAERS Safety Report 24284042 (Version 1)
Quarter: 2024Q3

REPORT INFORMATION
  Report Type: Spontaneous
  Country: CN (occurrence: CN)
  Receive Date: 20240905
  Receipt Date: 20240905
  Transmission Date: 20241016
  Serious: Yes (Hospitalization)
  Sender: NOVO NORDISK
  Company Number: CN-NOVOPROD-1275916

PATIENT
  Age: 77 Year
  Sex: Male
  Weight: 72 kg

DRUGS (2)
  1. INSULIN ASPART [Suspect]
     Active Substance: INSULIN ASPART
     Indication: Type 2 diabetes mellitus
     Dosage: 18 IU, BID(18 U BEFORE BREAKFAST AND 18 U BEFORE SUPPER)
     Route: 058
  2. GLUCOBAY [Concomitant]
     Active Substance: ACARBOSE
     Indication: Type 2 diabetes mellitus
     Dosage: 1 DF TID (1 TABLET BEFORE BREAKFAST, 1 TABLET BEFORE LUNCH AND 1 TABLET BEFORE SUPPER)

REACTIONS (1)
  - Tracheitis [Unknown]
